FAERS Safety Report 19108665 (Version 1)
Quarter: 2021Q2

REPORT INFORMATION
  Report Type: Spontaneous
  Country: US (occurrence: US)
  Receive Date: 20210408
  Receipt Date: 20210408
  Transmission Date: 20210717
  Serious: No
  Sender: FDA-Public Use
  Company Number: US-009507513-2012USA006185

PATIENT
  Sex: Male

DRUGS (3)
  1. ZOSTAVAX [Suspect]
     Active Substance: VARICELLA-ZOSTER VIRUS STRAIN OKA/MERCK LIVE ANTIGEN
     Indication: PROPHYLAXIS
     Dosage: .65 MILLILITER
     Route: 058
     Dates: start: 20150828
  2. STERILE DILUENT (WATER) [Suspect]
     Active Substance: WATER
     Dosage: UNK
     Dates: start: 20150828, end: 20150828
  3. CARBAMIDE PEROXIDE [Concomitant]
     Active Substance: CARBAMIDE PEROXIDE
     Indication: DEAFNESS
     Dosage: UNK
     Dates: start: 2012

REACTIONS (3)
  - Prostatomegaly [Unknown]
  - Herpes zoster [Unknown]
  - Varicose vein [Unknown]

NARRATIVE: CASE EVENT DATE: 20150928
